FAERS Safety Report 5029895-8 (Version None)
Quarter: 2006Q2

REPORT INFORMATION
  Report Type: 
  Country: None (occurrence: None)
  Receive Date: 20060620
  Receipt Date: 20060612
  Transmission Date: 20061013
  Serious: Yes (Other)
  Sender: FDA-Public Use
  Company Number: 2006AC01109

PATIENT
  Age: 54 Year
  Sex: Female

DRUGS (2)
  1. ATENOLOL [Suspect]
     Indication: HYPERTENSION
     Route: 048
  2. HERBAL SUPPLEMENT [Concomitant]

REACTIONS (3)
  - BREAST PAIN [None]
  - BREAST SWELLING [None]
  - INSOMNIA [None]
